FAERS Safety Report 17554277 (Version 1)
Quarter: 2020Q1

REPORT INFORMATION
  Report Type: Spontaneous
  Country: GB (occurrence: GB)
  Receive Date: 20200318
  Receipt Date: 20200318
  Transmission Date: 20200409
  Serious: Yes (Other)
  Sender: FDA-Public Use
  Company Number: GB-TEVA-2020-GB-1202365

PATIENT
  Age: 20 Year
  Sex: Female
  Weight: 51 kg

DRUGS (7)
  1. FLUCLOXACILLIN [Concomitant]
     Active Substance: FLUCLOXACILLIN
     Dosage: 4 DOSAGE FORMS
     Dates: start: 20200213, end: 20200220
  2. PHENOXYMETHYLPENICILLIN [Concomitant]
     Active Substance: PENICILLIN V
     Dosage: 4 DOSAGE FORMS
     Dates: start: 20200224
  3. HYDROXYCHLOROQUINE SULFATE. [Concomitant]
     Active Substance: HYDROXYCHLOROQUINE SULFATE
     Dosage: 1 DOSAGE FORM
     Dates: start: 20191010
  4. CLOMIPRAMINE [Concomitant]
     Active Substance: CLOMIPRAMINE
     Dosage: 3 DOSAGE FORMS
     Dates: start: 20191010
  5. RISPERIDONE. [Concomitant]
     Active Substance: RISPERIDONE
     Dosage: 2 DOSAGE FORMS DAILY; AT NIGHT AS DIRECTED BY SPECIALISTS
     Dates: start: 20191010
  6. MELATONIN [Concomitant]
     Active Substance: MELATONIN
     Dosage: 1 DOSAGE FORMS DAILY; AT NIGHT
     Dates: start: 20191010
  7. CLARITHROMYCIN. [Suspect]
     Active Substance: CLARITHROMYCIN
     Dosage: 500 MG
     Route: 065
     Dates: start: 20200221

REACTIONS (1)
  - Palpitations [Unknown]
